FAERS Safety Report 7760178-9 (Version None)
Quarter: 2011Q3

REPORT INFORMATION
  Report Type: 
  Country: None (occurrence: None)
  Receive Date: 20110919
  Receipt Date: 20110916
  Transmission Date: 20111222
  Serious: Yes (Other)
  Sender: FDA-Public Use
  Company Number: US-BRACCO-004885

PATIENT
  Sex: Male
  Weight: 82 kg

DRUGS (49)
  1. MAGNEVIST [Suspect]
     Indication: NUCLEAR MAGNETIC RESONANCE IMAGING
     Dates: start: 20040504, end: 20040504
  2. PREDNISONE [Concomitant]
  3. AVAPRO [Concomitant]
  4. PROHANCE [Suspect]
     Indication: NUCLEAR MAGNETIC RESONANCE IMAGING BRAIN
     Dates: start: 20030508, end: 20030508
  5. PROGRAF [Concomitant]
  6. RENAGEL [Concomitant]
  7. OMNISCAN [Suspect]
     Indication: NUCLEAR MAGNETIC RESONANCE IMAGING
     Dates: start: 20030402, end: 20110402
  8. JANUVIA [Concomitant]
  9. ASPIRIN [Concomitant]
  10. DEMADEX [Concomitant]
  11. CONTRAST MEDIA [Suspect]
     Indication: CORONARY ARTERY DISEASE
     Dates: start: 19901213
  12. CONTRAST MEDIA [Suspect]
     Dates: start: 19901213, end: 20050304
  13. MAGNEVIST [Suspect]
     Indication: INVESTIGATION
     Dates: start: 20050304, end: 20050304
  14. PLAVIX [Concomitant]
  15. OMNISCAN [Suspect]
     Indication: ANGIOGRAM
     Dates: start: 20040504, end: 20040504
  16. LIPITOR [Concomitant]
  17. FLOMAX [Concomitant]
  18. METOPROLOL TARTRATE [Concomitant]
  19. CONTRAST MEDIA [Suspect]
     Indication: NUCLEAR MAGNETIC RESONANCE IMAGING
     Dates: start: 20050304
  20. CONTRAST MEDIA [Suspect]
     Dates: start: 19901213, end: 20050304
  21. ASPIRIN [Concomitant]
  22. FERROUS SULFATE TAB [Concomitant]
  23. STARLIX [Concomitant]
  24. CONTRAST MEDIA [Suspect]
     Indication: RENAL FAILURE CHRONIC
     Dates: start: 20050315
  25. MAGNEVIST [Suspect]
     Indication: NUCLEAR MAGNETIC RESONANCE IMAGING ABDOMINAL
     Dates: start: 20050304, end: 20050304
  26. NOVOLOG [Concomitant]
     Dosage: DOSE: 70/30
  27. RANEXA [Concomitant]
  28. NEURONTIN [Concomitant]
  29. DIOVAN [Concomitant]
  30. VISIPAQUE [Suspect]
     Indication: ANGIOPLASTY
     Dates: start: 20050315
  31. PROHANCE [Suspect]
     Indication: ANGIOGRAM
     Dates: start: 20031116, end: 20031116
  32. IMDUR [Concomitant]
  33. PIOGLITAZONE [Concomitant]
  34. ALLOPURINOL [Concomitant]
  35. CONTRAST MEDIA [Suspect]
     Indication: RENAL ARTERY STENOSIS
     Dates: start: 20050304, end: 20050304
  36. MAGNEVIST [Suspect]
     Indication: ANGIOPLASTY
     Dates: start: 20031010
  37. MYCOPHENOLATE MOFETIL (CELLCEPT) [Concomitant]
  38. GABAPENTIN [Concomitant]
  39. NEPHROVITE [Concomitant]
  40. COREG [Concomitant]
  41. LASIX [Concomitant]
  42. LOPRESSOR [Concomitant]
  43. CONTRAST MEDIA [Suspect]
     Indication: ANGIOGRAM
     Dates: start: 20001026
  44. CONTRAST MEDIA [Suspect]
     Indication: CARDIAC FAILURE CONGESTIVE
     Dates: start: 20010904
  45. ARANESP [Concomitant]
  46. INDERAL [Concomitant]
  47. COZAAR [Concomitant]
  48. DILTIAZEM [Concomitant]
  49. AMBIEN [Concomitant]

REACTIONS (1)
  - NEPHROGENIC SYSTEMIC FIBROSIS [None]
